FAERS Safety Report 8056407-7 (Version None)
Quarter: 2012Q1

REPORT INFORMATION
  Report Type: 
  Country: None (occurrence: None)
  Receive Date: 20120119
  Receipt Date: 20110429
  Transmission Date: 20120608
  Serious: Yes (Hospitalization)
  Sender: FDA-Public Use
  Company Number: US-SANOFI-AVENTIS-2011SA027363

PATIENT
  Age: 76 Year
  Sex: Female

DRUGS (4)
  1. ALDACTONE [Concomitant]
  2. LASIX [Suspect]
     Route: 065
  3. LOSARTAN POTASSIUM [Concomitant]
  4. COREG [Concomitant]

REACTIONS (2)
  - FLUID RETENTION [None]
  - DRUG ADMINISTRATION ERROR [None]
